FAERS Safety Report 20819987 (Version 1)
Quarter: 2022Q2

REPORT INFORMATION
  Report Type: Spontaneous
  Country: US (occurrence: None)
  Receive Date: 20220511
  Receipt Date: 20220511
  Transmission Date: 20220721
  Serious: Yes (Other)
  Sender: FDA-Public Use
  Company Number: None

PATIENT
  Age: 47 Year
  Sex: Female
  Weight: 57.15 kg

DRUGS (5)
  1. DESVENLAFAXINE SUCCINATE [Suspect]
     Active Substance: DESVENLAFAXINE SUCCINATE
     Indication: Anxiety
     Dosage: OTHER FREQUENCY : NIGHTLY;?
     Route: 048
     Dates: start: 20220315, end: 20220329
  2. DESVENLAFAXINE SUCCINATE [Suspect]
     Active Substance: DESVENLAFAXINE SUCCINATE
     Indication: Irritability
  3. DESVENLAFAXINE SUCCINATE [Suspect]
     Active Substance: DESVENLAFAXINE SUCCINATE
     Indication: Fatigue
  4. DESVENLAFAXINE SUCCINATE [Suspect]
     Active Substance: DESVENLAFAXINE SUCCINATE
     Indication: Depression
  5. DESVENLAFAXINE SUCCINATE [Suspect]
     Active Substance: DESVENLAFAXINE SUCCINATE

REACTIONS (11)
  - Withdrawal syndrome [None]
  - Symptom recurrence [None]
  - Product substitution issue [None]
  - Migraine [None]
  - Headache [None]
  - Tremor [None]
  - Crying [None]
  - Irritability [None]
  - Panic attack [None]
  - Product availability issue [None]
  - Suspected product quality issue [None]

NARRATIVE: CASE EVENT DATE: 20220330
